FAERS Safety Report 9368757 (Version 1)
Quarter: 2013Q2

REPORT INFORMATION
  Report Type: Spontaneous
  Country: MY (occurrence: MY)
  Receive Date: 20130626
  Receipt Date: 20130626
  Transmission Date: 20140414
  Serious: Yes (Hospitalization)
  Sender: FDA-Public Use
  Company Number: PHHY2013MY062731

PATIENT
  Age: 31 Year
  Sex: Male

DRUGS (1)
  1. QUETIAPINE [Suspect]
     Indication: SCHIZOPHRENIA
     Dosage: 40 TABLETS 100 MG

REACTIONS (10)
  - Haemodynamic instability [Recovered/Resolved]
  - Pneumothorax [Recovering/Resolving]
  - Mucosal dryness [Recovered/Resolved]
  - Dry mouth [Recovered/Resolved]
  - Hyperglycaemia [Recovering/Resolving]
  - Unresponsive to stimuli [Recovered/Resolved]
  - Grand mal convulsion [Recovered/Resolved]
  - Sinus tachycardia [Recovered/Resolved]
  - Hypotension [Recovered/Resolved]
  - Overdose [Unknown]
